FAERS Safety Report 13357565 (Version 1)
Quarter: 2017Q1

REPORT INFORMATION
  Report Type: Spontaneous
  Country: US (occurrence: US)
  Receive Date: 20170322
  Receipt Date: 20170322
  Transmission Date: 20170429
  Serious: Yes (Other)
  Sender: FDA-Public Use
  Company Number: US-AUROBINDO-AUR-APL-2017-31106

PATIENT
  Age: 6 Decade
  Sex: Male

DRUGS (2)
  1. SIMVASTATIN 20MG [Suspect]
     Active Substance: SIMVASTATIN
     Indication: PRODUCT USED FOR UNKNOWN INDICATION
     Dosage: 20 MG, UNK
     Route: 065
  2. NIACIN. [Concomitant]
     Active Substance: NIACIN
     Indication: PRODUCT USED FOR UNKNOWN INDICATION
     Dosage: 1500 MG, UNK
     Route: 065

REACTIONS (5)
  - Blood testosterone decreased [Unknown]
  - Myalgia [Recovering/Resolving]
  - Exercise tolerance decreased [Recovering/Resolving]
  - Asthenia [Recovering/Resolving]
  - Muscle fatigue [Recovering/Resolving]
